FAERS Safety Report 8822927 (Version 1)
Quarter: 2012Q4

REPORT INFORMATION
  Report Type: 
  Country: JP (occurrence: JP)
  Receive Date: 20121003
  Receipt Date: 20121003
  Transmission Date: 20130627
  Serious: Yes (Hospitalization, Other)
  Sender: FDA-Public Use
  Company Number: PHHY2012JP079980

PATIENT
  Age: 74 Year
  Sex: Male

DRUGS (4)
  1. EXELON PATCH [Suspect]
     Indication: DEMENTIA ALZHEIMER^S TYPE
     Route: 062
  2. EXELON PATCH [Suspect]
     Dosage: 18 mg, Daily
     Route: 062
  3. EXELON PATCH [Suspect]
     Dosage: Three 18mg patches applied at once.
     Route: 062
     Dates: start: 201209
  4. EXELON PATCH [Suspect]
     Route: 062

REACTIONS (4)
  - Vomiting [Recovered/Resolved]
  - Intentional drug misuse [Unknown]
  - Nausea [Recovered/Resolved]
  - Incorrect dose administered [Unknown]
